FAERS Safety Report 9224604 (Version 1)
Quarter: 2013Q2

REPORT INFORMATION
  Report Type: Spontaneous
  Country: US (occurrence: US)
  Receive Date: 20130411
  Receipt Date: 20130411
  Transmission Date: 20140414
  Serious: No
  Sender: FDA-Public Use
  Company Number: US-ASTRAZENECA-2013SE19555

PATIENT
  Age: 59 Year
  Sex: Male
  Weight: 103 kg

DRUGS (12)
  1. RHINOCORT [Suspect]
     Indication: NASAL CONGESTION
     Dosage: 2 SPRAYS EACH IN NOSTRLI BID
     Route: 045
     Dates: start: 20130303
  2. CRESTOR [Suspect]
     Route: 048
  3. ONGLYZA [Suspect]
     Indication: BLOOD GLUCOSE ABNORMAL
     Route: 048
  4. ASTEPRO NASAL SPRAY [Suspect]
     Dosage: 1 SPRAY IN EACH NOSTRIL BID
     Route: 045
  5. STEROID NASAL SPRAY [Suspect]
     Route: 065
  6. METFORMIN [Concomitant]
     Route: 048
     Dates: start: 20130221
  7. LISINOPRIL [Concomitant]
     Indication: BLOOD PRESSURE
     Route: 048
  8. NORVASC [Concomitant]
     Indication: BLOOD PRESSURE
     Route: 048
  9. DEXILANT DR [Concomitant]
     Indication: GASTROOESOPHAGEAL REFLUX DISEASE
     Route: 048
  10. PLAVIX [Concomitant]
     Route: 048
  11. DULCOLAX [Concomitant]
     Indication: CONSTIPATION
     Dosage: 2 TABLETS PRN
     Route: 048
  12. SALINE LAXATIVE [Concomitant]
     Indication: CONSTIPATION
     Dosage: ONCE
     Route: 048

REACTIONS (7)
  - Vision blurred [Unknown]
  - Nasal congestion [Unknown]
  - Gastrooesophageal reflux disease [Unknown]
  - Blood glucose increased [Unknown]
  - Constipation [Unknown]
  - Abdominal pain upper [Unknown]
  - Off label use [Unknown]
